FAERS Safety Report 17496766 (Version 2)
Quarter: 2020Q2

REPORT INFORMATION
  Report Type: Spontaneous
  Country: US (occurrence: US)
  Receive Date: 20200304
  Receipt Date: 20200406
  Transmission Date: 20200713
  Serious: No
  Sender: FDA-Public Use
  Company Number: US-JNJFOC-20200229841

PATIENT
  Age: 65 Year
  Sex: Female
  Weight: 108.96 kg

DRUGS (7)
  1. TRAMADOL. [Concomitant]
     Active Substance: TRAMADOL
     Indication: NEUROPATHY PERIPHERAL
  2. CORAL CALCIUM                      /00751501/ [Concomitant]
     Indication: PRODUCT USED FOR UNKNOWN INDICATION
     Route: 065
  3. POTASSIUM [Concomitant]
     Active Substance: POTASSIUM
     Indication: HYPOKALAEMIA
  4. VITAMIN C [Concomitant]
     Active Substance: ASCORBIC ACID
     Indication: PRODUCT USED FOR UNKNOWN INDICATION
     Route: 065
  5. TRAMADOL. [Concomitant]
     Active Substance: TRAMADOL
     Indication: BONE PAIN
     Route: 065
  6. TOPAMAX [Suspect]
     Active Substance: TOPIRAMATE
     Indication: NEURALGIA
     Route: 048
  7. HYDROCODONE [Suspect]
     Active Substance: HYDROCODONE
     Indication: NEUROPATHY PERIPHERAL
     Route: 065

REACTIONS (12)
  - Visual impairment [Unknown]
  - Blood glucose increased [Unknown]
  - Arthralgia [Not Recovered/Not Resolved]
  - Product use in unapproved indication [Unknown]
  - Diarrhoea [Not Recovered/Not Resolved]
  - Vomiting [Not Recovered/Not Resolved]
  - Off label use [Unknown]
  - Weight decreased [Not Recovered/Not Resolved]
  - Gout [Not Recovered/Not Resolved]
  - Crystal arthropathy [Not Recovered/Not Resolved]
  - Thinking abnormal [Unknown]
  - Headache [Unknown]

NARRATIVE: CASE EVENT DATE: 2019
